FAERS Safety Report 10686835 (Version 2)
Quarter: 2015Q1

REPORT INFORMATION
  Report Type: Spontaneous
  Country: JP (occurrence: JP)
  Receive Date: 20150101
  Receipt Date: 20150116
  Transmission Date: 20150720
  Serious: Yes (Other)
  Sender: FDA-Public Use
  Company Number: JP-ASTRAZENECA-2014SE99801

PATIENT
  Age: 26 Year
  Sex: Female
  Weight: 50 kg

DRUGS (5)
  1. CONTOMIN [Concomitant]
     Active Substance: CHLORPROMAZINE
     Route: 048
  2. QUETIAPINE (NON AZ PRODUCT) [Suspect]
     Active Substance: QUETIAPINE
     Indication: SCHIZOPHRENIA
     Route: 048
     Dates: start: 20131019, end: 20131021
  3. VEGETAMIN [Concomitant]
     Active Substance: CHLORPROMAZINE HYDROCHLORIDE\PHENOBARBITAL\PROMETHAZINE HYDROCHLORIDE
     Route: 048
  4. QUETIAPINE (NON AZ PRODUCT) [Suspect]
     Active Substance: QUETIAPINE
     Indication: PSYCHOTIC DISORDER
     Route: 048
     Dates: start: 20131019, end: 20131021
  5. ZOLPIDEM TARTRATE. [Concomitant]
     Active Substance: ZOLPIDEM TARTRATE
     Route: 048

REACTIONS (6)
  - C-reactive protein increased [Unknown]
  - Blood creatine phosphokinase increased [Unknown]
  - Pyrexia [Unknown]
  - Drug eruption [Recovered/Resolved]
  - Liver disorder [Recovered/Resolved]
  - Intentional product misuse [Unknown]

NARRATIVE: CASE EVENT DATE: 20131019
